FAERS Safety Report 7555231-9 (Version None)
Quarter: 2011Q2

REPORT INFORMATION
  Report Type: 
  Country: None (occurrence: None)
  Receive Date: 20110617
  Receipt Date: 20110608
  Transmission Date: 20111010
  Serious: Yes (Hospitalization)
  Sender: FDA-Public Use
  Company Number: US-AMGEN-USASP2011029603

PATIENT
  Age: 54 Year
  Sex: Male

DRUGS (2)
  1. XGEVA [Suspect]
     Indication: HYPERCALCAEMIA
     Dosage: 120 MG, Q4WK
     Dates: start: 20110526
  2. ZOMETA [Concomitant]

REACTIONS (3)
  - DYSPNOEA [None]
  - PULMONARY EMBOLISM [None]
  - PNEUMONIA [None]
